FAERS Safety Report 17532744 (Version 5)
Quarter: 2020Q3

REPORT INFORMATION
  Report Type: Spontaneous
  Country: US (occurrence: US)
  Receive Date: 20200312
  Receipt Date: 20200702
  Transmission Date: 20201102
  Serious: Yes (Other)
  Sender: FDA-Public Use
  Company Number: US-PFIZER INC-2020108009

PATIENT
  Age: 84 Year
  Sex: Female
  Weight: 55.34 kg

DRUGS (3)
  1. PREGABALIN. [Suspect]
     Active Substance: PREGABALIN
     Dosage: 75 MG
     Dates: start: 20200213
  2. PREGABALIN. [Suspect]
     Active Substance: PREGABALIN
     Indication: FIBROMYALGIA
     Dosage: 100 MG, UNK
     Dates: start: 202001
  3. PREGABALIN. [Suspect]
     Active Substance: PREGABALIN
     Indication: NEURALGIA
     Dosage: 75 MG, UNK
     Dates: start: 20200117

REACTIONS (4)
  - Hallucination [Recovering/Resolving]
  - Thinking abnormal [Recovering/Resolving]
  - Somnolence [Unknown]
  - Visual impairment [Not Recovered/Not Resolved]
